FAERS Safety Report 23928779 (Version 1)
Quarter: 2024Q2

REPORT INFORMATION
  Report Type: Spontaneous
  Country: US (occurrence: US)
  Receive Date: 20240531
  Receipt Date: 20240531
  Transmission Date: 20240716
  Serious: No
  Sender: FDA-Public Use
  Company Number: US-RADIUS HEALTH INC.-2024US001181

PATIENT
  Sex: Female

DRUGS (3)
  1. TYMLOS [Suspect]
     Active Substance: ABALOPARATIDE
     Indication: Product used for unknown indication
     Dosage: 80 MICROGRAM, QD
     Route: 058
     Dates: start: 2022
  2. TYMLOS [Suspect]
     Active Substance: ABALOPARATIDE
     Dosage: 50 MICROGRAM, QD
     Route: 058
  3. TYMLOS [Suspect]
     Active Substance: ABALOPARATIDE
     Dosage: 60 MICROGRAM, QD
     Route: 058

REACTIONS (12)
  - Spinal fracture [Unknown]
  - Intentional dose omission [Unknown]
  - Depressed mood [Unknown]
  - Lacrimation increased [Unknown]
  - Therapeutic response unexpected [Recovered/Resolved]
  - Palpitations [Recovered/Resolved]
  - Nausea [Recovered/Resolved]
  - Bone pain [Unknown]
  - Intentional product misuse [Unknown]
  - Heart rate increased [Recovered/Resolved]
  - Back pain [Not Recovered/Not Resolved]
  - Arthralgia [Unknown]
